FAERS Safety Report 5044535-X (Version None)
Quarter: 2006Q3

REPORT INFORMATION
  Report Type: 
  Country: None (occurrence: None)
  Receive Date: 20060706
  Receipt Date: 20060428
  Transmission Date: 20061208
  Serious: Yes (Death, Life-Threatening, Hospitalization, Other)
  Sender: FDA-Public Use
  Company Number: EE-BRISTOL-MYERS SQUIBB COMPANY-13359815

PATIENT
  Age: 33 Year
  Sex: Female

DRUGS (8)
  1. CISPLATIN [Suspect]
     Indication: GASTRIC CANCER
     Route: 041
     Dates: start: 20060413, end: 20060413
  2. FLUOROURACIL [Suspect]
     Indication: GASTRIC CANCER
     Route: 041
     Dates: start: 20060413, end: 20060418
  3. GRANISETRON  HCL [Concomitant]
     Indication: VOMITING
     Route: 042
     Dates: start: 20060413, end: 20060417
  4. APREPITANT [Concomitant]
     Indication: VOMITING
     Dosage: DOSE: 125/80 MG PER DAY
     Route: 048
     Dates: start: 20060413, end: 20060415
  5. DEXAMETHASONE TAB [Concomitant]
     Indication: VOMITING
     Route: 042
     Dates: start: 20060413, end: 20060413
  6. DEXAMETHASONE TAB [Concomitant]
     Route: 048
     Dates: start: 20060414, end: 20060415
  7. METOCLOPRAMIDE [Concomitant]
     Indication: VOMITING
     Route: 048
     Dates: start: 20060413, end: 20060423
  8. DEXAMETHASONE TAB [Concomitant]
     Indication: NAUSEA
     Route: 048
     Dates: start: 20060414, end: 20060415

REACTIONS (5)
  - FEBRILE NEUTROPENIA [None]
  - RENAL IMPAIRMENT [None]
  - SEPTIC SHOCK [None]
  - STOMATITIS [None]
  - THROMBOCYTOPENIA [None]
